FAERS Safety Report 9162274 (Version 1)
Quarter: 2013Q1

REPORT INFORMATION
  Report Type: Spontaneous
  Country: AR (occurrence: AR)
  Receive Date: 20130314
  Receipt Date: 20130314
  Transmission Date: 20140127
  Serious: Yes (Other)
  Sender: FDA-Public Use
  Company Number: PHHY2013AR024583

PATIENT
  Sex: Female

DRUGS (1)
  1. DIOVAN [Suspect]
     Indication: OEDEMA PERIPHERAL
     Dosage: 1.5 DF(80MG), DAILY
     Route: 048

REACTIONS (3)
  - Parkinson^s disease [Recovering/Resolving]
  - Mobility decreased [Recovering/Resolving]
  - Wrong technique in drug usage process [Unknown]
